FAERS Safety Report 9305073 (Version 1)
Quarter: 2013Q2

REPORT INFORMATION
  Report Type: Spontaneous
  Country: US (occurrence: None)
  Receive Date: 20130521
  Receipt Date: 20130521
  Transmission Date: 20140414
  Serious: Yes (Hospitalization)
  Sender: FDA-Public Use
  Company Number: JPI-P-031653

PATIENT
  Age: 17 Year
  Sex: Male
  Weight: 89.81 kg

DRUGS (8)
  1. XYREM (500 MILLIGRAM/MILLILITERS, SOLUTION) (SODIUM OXYBATE) [Suspect]
     Indication: CATAPLEXY
     Route: 048
     Dates: start: 20120926
  2. ALBUTEROL [Concomitant]
  3. BUDESONIDE/FORMOTEROL FUMARATE [Concomitant]
  4. MODAFINIL [Concomitant]
  5. DESONIDE [Concomitant]
  6. BUDESONIDE [Concomitant]
  7. CETIRIZINE [Concomitant]
  8. CICLOPIROX [Concomitant]

REACTIONS (1)
  - Investigation [None]
